FAERS Safety Report 7703322-1 (Version None)
Quarter: 2011Q3

REPORT INFORMATION
  Report Type: 
  Country: None (occurrence: None)
  Receive Date: 20110823
  Receipt Date: 20110811
  Transmission Date: 20111222
  Serious: Yes (Other)
  Sender: FDA-Public Use
  Company Number: GB-ELI_LILLY_AND_COMPANY-GB201108004119

PATIENT
  Age: 44 Year
  Sex: Male
  Weight: 55 kg

DRUGS (5)
  1. LOMOTIL [Concomitant]
  2. BACLOFEN [Concomitant]
  3. CODEINE SULFATE [Concomitant]
  4. INSULIN GLARGINE [Concomitant]
     Indication: DIABETES MELLITUS
  5. FLUOXETINE [Suspect]
     Dosage: 20 MG, UNK
     Route: 048
     Dates: start: 20110706

REACTIONS (3)
  - SYNCOPE [None]
  - CHEST PAIN [None]
  - DYSPEPSIA [None]
